FAERS Safety Report 6828221-9 (Version None)
Quarter: 2010Q3

REPORT INFORMATION
  Report Type: 
  Country: None (occurrence: None)
  Receive Date: 20100709
  Receipt Date: 20070202
  Transmission Date: 20110219
  Serious: No
  Sender: FDA-Public Use
  Company Number: US-PFIZER INC-2007009877

PATIENT
  Sex: Female
  Weight: 72.57 kg

DRUGS (5)
  1. CHANTIX [Suspect]
     Indication: SMOKING CESSATION THERAPY
     Dates: start: 20061201
  2. LITHIUM CARBONATE [Concomitant]
  3. EFFEXOR [Concomitant]
  4. TOPAMAX [Concomitant]
  5. AMBIEN [Concomitant]

REACTIONS (4)
  - ABDOMINAL DISCOMFORT [None]
  - CONSTIPATION [None]
  - NAUSEA [None]
  - VOMITING [None]
